FAERS Safety Report 7446058-7 (Version None)
Quarter: 2011Q2

REPORT INFORMATION
  Report Type: 
  Country: None (occurrence: None)
  Receive Date: 20110429
  Receipt Date: 20110426
  Transmission Date: 20111010
  Serious: Yes (Death, Life-Threatening, Hospitalization, Other)
  Sender: FDA-Public Use
  Company Number: JP-PFIZER INC-2010027122

PATIENT
  Age: 72 Year
  Sex: Male

DRUGS (16)
  1. AMLODIN [Concomitant]
     Indication: HYPERTENSION
     Route: 048
     Dates: start: 20091006
  2. THYRADIN S [Concomitant]
     Indication: HYPOTHYROIDISM
     Route: 048
     Dates: start: 20091006
  3. CIBENZOLINE SUCCINATE [Concomitant]
     Route: 048
     Dates: start: 20091124
  4. POLYCARBOPHIL CALCIUM [Concomitant]
     Indication: DIARRHOEA
     Route: 048
     Dates: start: 20091006
  5. PURSENNID [Concomitant]
     Route: 048
     Dates: start: 20091202
  6. MICARDIS [Concomitant]
     Indication: HYPERTENSION
     Route: 048
     Dates: start: 20091006
  7. RHYTHMY [Concomitant]
     Indication: INSOMNIA
     Route: 048
     Dates: start: 20091127
  8. FLIVAS [Concomitant]
     Indication: HYPERTENSION
     Route: 048
     Dates: start: 20091006
  9. LASIX [Concomitant]
     Indication: OEDEMA
     Route: 048
     Dates: start: 20091006
  10. ASPARA K [Concomitant]
     Route: 048
     Dates: start: 20091125
  11. TAKEPRON [Concomitant]
     Indication: OESOPHAGITIS
     Route: 048
     Dates: start: 20091006
  12. CRESTOR [Concomitant]
     Route: 048
     Dates: start: 20091006
  13. VOLTAREN [Concomitant]
     Indication: CANCER PAIN
     Route: 048
     Dates: start: 20091224
  14. AUGMENTIN [Concomitant]
     Indication: PLEURISY
     Route: 048
     Dates: start: 20091124
  15. LOXONIN [Concomitant]
     Indication: CANCER PAIN
     Route: 048
     Dates: start: 20091129
  16. SUNITINIB MALATE [Suspect]
     Indication: RENAL CELL CARCINOMA
     Dosage: 50 MG, 1X/DAY
     Route: 048
     Dates: start: 20100101, end: 20100223

REACTIONS (9)
  - DIARRHOEA [None]
  - DECREASED APPETITE [None]
  - INTESTINAL OBSTRUCTION [None]
  - PNEUMOTHORAX [None]
  - PLATELET COUNT DECREASED [None]
  - RENAL IMPAIRMENT [None]
  - PNEUMONIA [None]
  - MELAENA [None]
  - VOMITING [None]
